FAERS Safety Report 23451797 (Version 1)
Quarter: 2024Q1

REPORT INFORMATION
  Report Type: Spontaneous
  Country: US (occurrence: US)
  Receive Date: 20240129
  Receipt Date: 20240129
  Transmission Date: 20240410
  Serious: No
  Sender: FDA-Public Use
  Company Number: US-SA-SAC20240124001298

PATIENT
  Sex: Male

DRUGS (2)
  1. DUPIXENT [Suspect]
     Active Substance: DUPILUMAB
     Indication: Palmoplantar pustulosis
     Dosage: 300 MG, QOW
     Route: 058
  2. DUPIXENT [Suspect]
     Active Substance: DUPILUMAB
     Indication: Psoriasis

REACTIONS (3)
  - Skin disorder [Unknown]
  - Product dose omission issue [Unknown]
  - Product use in unapproved indication [Unknown]
